FAERS Safety Report 17051537 (Version 1)
Quarter: 2019Q4

REPORT INFORMATION
  Report Type: Spontaneous
  Country: US (occurrence: US)
  Receive Date: 20191120
  Receipt Date: 20191120
  Transmission Date: 20200122
  Serious: No
  Sender: FDA-Public Use
  Company Number: US-UNITED THERAPEUTICS-UNT-2019-019131

PATIENT
  Age: 53 Year
  Sex: Female

DRUGS (1)
  1. REMODULIN [Suspect]
     Active Substance: TREPROSTINIL
     Indication: PULMONARY ARTERIAL HYPERTENSION
     Dosage: 0.0602 ?G/KG, CONTINUING
     Route: 041
     Dates: start: 201410

REACTIONS (7)
  - Injection site pain [Unknown]
  - Device breakage [Unknown]
  - Device infusion issue [Unknown]
  - Product contamination [Unknown]
  - Nausea [Unknown]
  - Poor quality product administered [Unknown]
  - Injection site pruritus [Unknown]

NARRATIVE: CASE EVENT DATE: 20191112
